FAERS Safety Report 8383822-4 (Version None)
Quarter: 2012Q2

REPORT INFORMATION
  Report Type: 
  Country: None (occurrence: None)
  Receive Date: 20120524
  Receipt Date: 20120423
  Transmission Date: 20120825
  Serious: Yes (Other)
  Sender: FDA-Public Use
  Company Number: US-UCBSA-054985

PATIENT
  Age: 65 Year
  Sex: Female

DRUGS (8)
  1. XANAX [Concomitant]
  2. CIMZIA [Suspect]
     Indication: SJOGREN'S SYNDROME
     Route: 058
     Dates: start: 20120221
  3. CIMZIA [Suspect]
     Indication: RHEUMATOID ARTHRITIS
     Route: 058
     Dates: start: 20120221
  4. HYDROCHLOROTHIAZIDE [Concomitant]
  5. VITAMIN D [Concomitant]
  6. TOPROL-XL [Concomitant]
  7. PROTONIX [Concomitant]
  8. HYDROCODONE [Concomitant]

REACTIONS (8)
  - LETHARGY [None]
  - INJECTION SITE ERYTHEMA [None]
  - MALAISE [None]
  - OEDEMA PERIPHERAL [None]
  - PYREXIA [None]
  - HYPERSOMNIA [None]
  - INFLAMMATION [None]
  - WEIGHT DECREASED [None]
